FAERS Safety Report 7295307-7 (Version None)
Quarter: 2011Q1

REPORT INFORMATION
  Report Type: 
  Country: None (occurrence: None)
  Receive Date: 20110216
  Receipt Date: 20110214
  Transmission Date: 20110831
  Serious: Yes (Other)
  Sender: FDA-Public Use
  Company Number: GB-PFIZER INC-2011032289

PATIENT
  Sex: Male

DRUGS (1)
  1. NEURONTIN [Suspect]
     Dosage: 900 MG, 3X/DAY

REACTIONS (2)
  - DYSPHAGIA [None]
  - THROAT CANCER [None]
